FAERS Safety Report 13690463 (Version 2)
Quarter: 2017Q4

REPORT INFORMATION
  Report Type: Spontaneous
  Country: JP (occurrence: JP)
  Receive Date: 20170626
  Receipt Date: 20171109
  Transmission Date: 20180320
  Serious: Yes (Other)
  Sender: FDA-Public Use
  Company Number: JP-JNJFOC-20170622114

PATIENT
  Age: 80 Year
  Sex: Female

DRUGS (2)
  1. PLAVIX [Suspect]
     Active Substance: CLOPIDOGREL BISULFATE
     Indication: PRODUCT USED FOR UNKNOWN INDICATION
     Route: 048
     Dates: start: 201702, end: 201702
  2. XARELTO [Suspect]
     Active Substance: RIVAROXABAN
     Indication: PRODUCT USED FOR UNKNOWN INDICATION
     Route: 048
     Dates: start: 201702, end: 201702

REACTIONS (2)
  - Suicide attempt [Unknown]
  - Intentional overdose [Unknown]

NARRATIVE: CASE EVENT DATE: 201702
